FAERS Safety Report 7400441-4 (Version None)
Quarter: 2011Q1

REPORT INFORMATION
  Report Type: 
  Country: None (occurrence: None)
  Receive Date: 20110329
  Receipt Date: 20081121
  Transmission Date: 20110831
  Serious: Yes (Hospitalization)
  Sender: FDA-Public Use
  Company Number: TPA2011A01213

PATIENT
  Age: 62 Year
  Sex: Male
  Weight: 65.7716 kg

DRUGS (6)
  1. RAMELTEON [Suspect]
     Indication: NEURALGIA
     Dosage: 8 MG, NIGHTLY, PER ORAL
     Route: 048
     Dates: start: 20081105, end: 20081107
  2. GABAPENTIN [Concomitant]
  3. LIPITOR [Concomitant]
  4. METHADONE (METHADONE) [Concomitant]
  5. NORTRIPTYLINE (NORTRIPTYLINE) [Concomitant]
  6. LYRICA [Concomitant]

REACTIONS (4)
  - BLOOD CREATINE PHOSPHOKINASE INCREASED [None]
  - INSOMNIA [None]
  - LOBAR PNEUMONIA [None]
  - MENTAL STATUS CHANGES [None]
